FAERS Safety Report 21619516 (Version 1)
Quarter: 2022Q4

REPORT INFORMATION
  Report Type: Other
  Country: MX (occurrence: None)
  Receive Date: 20221121
  Receipt Date: 20221121
  Transmission Date: 20230113
  Serious: No
  Sender: FDA-Public Use
  Company Number: MX-ROCHE-3222113

PATIENT
  Age: 26 Year
  Sex: Female
  Weight: 62 kg

DRUGS (1)
  1. OCREVUS [Suspect]
     Active Substance: OCRELIZUMAB
     Indication: Multiple sclerosis
     Dosage: OCRELIZUMAB VIAL 300MG/10ML (30MG/ML)
     Route: 042
     Dates: start: 20210512

REACTIONS (1)
  - Ear infection fungal [Not Recovered/Not Resolved]

NARRATIVE: CASE EVENT DATE: 20220901
